FAERS Safety Report 16000677 (Version 6)
Quarter: 2020Q2

REPORT INFORMATION
  Report Type: Spontaneous
  Country: US (occurrence: US)
  Receive Date: 20190225
  Receipt Date: 20200617
  Transmission Date: 20200713
  Serious: No
  Sender: FDA-Public Use
  Company Number: US-PFIZER INC-2019072852

PATIENT
  Age: 73 Year
  Sex: Female
  Weight: 54 kg

DRUGS (5)
  1. IBRANCE [Suspect]
     Active Substance: PALBOCICLIB
     Dosage: 100 MG, CYCLIC (ONCE A DAY FOR 21 DAYS AND THEN OFF FOR 7 DAYS)
     Route: 048
  2. LETROZOLE. [Concomitant]
     Active Substance: LETROZOLE
     Indication: BREAST CANCER METASTATIC
     Dosage: 2.5 MG, 1X/DAY
     Route: 048
     Dates: start: 201808
  3. IBRANCE [Suspect]
     Active Substance: PALBOCICLIB
     Indication: BREAST CANCER METASTATIC
     Dosage: 125 MG, CYCLIC (ONCE A DAY FOR 21 DAYS AND THEN OFF FOR 7 DAYS)
     Route: 048
     Dates: start: 201808
  4. IBRANCE [Suspect]
     Active Substance: PALBOCICLIB
     Dosage: 75 MG (3 WEEKS AND THEN OFF A WEEK)
     Route: 048
  5. IBRANCE [Suspect]
     Active Substance: PALBOCICLIB
     Dosage: 75 MG (2 WEEKS ON AND 1 WEEK OFF)
     Route: 048

REACTIONS (4)
  - Neutrophil count decreased [Recovering/Resolving]
  - Lymphocyte count abnormal [Recovered/Resolved]
  - Monocyte count abnormal [Recovered/Resolved]
  - Blood count abnormal [Recovering/Resolving]

NARRATIVE: CASE EVENT DATE: 201808
